FAERS Safety Report 7485500-2 (Version None)
Quarter: 2011Q2

REPORT INFORMATION
  Report Type: 
  Country: None (occurrence: None)
  Receive Date: 20110516
  Receipt Date: 20110516
  Transmission Date: 20111010
  Serious: Yes (Other)
  Sender: FDA-Public Use
  Company Number: None

PATIENT
  Age: 57 Year
  Sex: Female
  Weight: 86.1834 kg

DRUGS (1)
  1. OMEPRAZOLE MAGNESIUM [Suspect]
     Indication: GASTROOESOPHAGEAL REFLUX DISEASE
     Dosage: 1 CAPSULE 1 X DAY
     Dates: start: 20110502, end: 20110514

REACTIONS (11)
  - VOMITING [None]
  - PRODUCT MEASURED POTENCY ISSUE [None]
  - CHOKING [None]
  - TRACHEAL OBSTRUCTION [None]
  - HYPOPHAGIA [None]
  - PRODUCT SUBSTITUTION ISSUE [None]
  - NAUSEA [None]
  - GASTROOESOPHAGEAL REFLUX DISEASE [None]
  - PRODUCT LABEL ISSUE [None]
  - DYSPEPSIA [None]
  - RECTAL DISCHARGE [None]
